FAERS Safety Report 6689104-0 (Version None)
Quarter: 2010Q2

REPORT INFORMATION
  Report Type: 
  Country: None (occurrence: None)
  Receive Date: 20100415
  Receipt Date: 20100406
  Transmission Date: 20101027
  Serious: Yes (Hospitalization)
  Sender: FDA-Public Use
  Company Number: 2010SP008255

PATIENT
  Age: 69 Year
  Sex: Male
  Weight: 68.8 kg

DRUGS (8)
  1. PEG-INTRON [Suspect]
     Indication: HEPATITIS C
     Dosage: 100 MCG;QW;SC
     Route: 058
     Dates: start: 20091114, end: 20100130
  2. REBETOL [Suspect]
     Indication: HEPATITIS C
     Dosage: 800 MG;QD;PO
     Route: 048
     Dates: start: 20091114, end: 20100205
  3. AMLODIN (CON.) [Concomitant]
  4. BLOPRESS (CON.) [Concomitant]
  5. JUVELA N (CON.) [Concomitant]
  6. METHYCOBAL (CON.) [Concomitant]
  7. SEIBULE (CON.) [Concomitant]
  8. FLIVAS (CON.) [Concomitant]

REACTIONS (5)
  - DYSPNOEA [None]
  - HAEMOTHORAX [None]
  - IMMUNE SYSTEM DISORDER [None]
  - PNEUMONIA [None]
  - TUBERCULOSIS [None]
